FAERS Safety Report 7683995-2 (Version None)
Quarter: 2011Q3

REPORT INFORMATION
  Report Type: 
  Country: None (occurrence: None)
  Receive Date: 20110815
  Receipt Date: 20110712
  Transmission Date: 20111222
  Serious: No
  Sender: FDA-Public Use
  Company Number: US-BAYER-2011-061759

PATIENT
  Age: 16 Year
  Sex: Female

DRUGS (1)
  1. ALEVE (CAPLET) [Suspect]
     Indication: TOOTHACHE
     Dosage: 4 DF, ONCE
     Dates: start: 20110712, end: 20110712

REACTIONS (1)
  - NO ADVERSE EVENT [None]
